FAERS Safety Report 8832949 (Version 1)
Quarter: 2012Q4

REPORT INFORMATION
  Report Type: 
  Country: GB (occurrence: GB)
  Receive Date: 20121010
  Receipt Date: 20121010
  Transmission Date: 20130627
  Serious: Yes (Other)
  Sender: FDA-Public Use
  Company Number: PHHY2012GB086115

PATIENT
  Age: 76 Year
  Sex: Female
  Weight: 46.7 kg

DRUGS (6)
  1. AMLODIPINE [Suspect]
     Indication: HYPERTENSION
     Dosage: 5 mg, QD (One in the morning)
     Dates: start: 20120912, end: 20120912
  2. PLAVIX [Concomitant]
  3. ATENOLOL [Concomitant]
  4. VITAMIN B COMPLEX [Concomitant]
  5. IRBESARTAN [Concomitant]
  6. GAVISCON [Concomitant]

REACTIONS (3)
  - Chest pain [Recovered/Resolved]
  - Swelling [Recovered/Resolved]
  - Eye disorder [Unknown]
